FAERS Safety Report 8981857 (Version 3)
Quarter: 2013Q2

REPORT INFORMATION
  Report Type: Report from Study
  Country: US (occurrence: US)
  Receive Date: 20121223
  Receipt Date: 20130627
  Transmission Date: 20140414
  Serious: Yes (Hospitalization, Disabling)
  Sender: FDA-Public Use
  Company Number: PHEH2012US025068

PATIENT
  Age: 65 Year
  Sex: Female

DRUGS (6)
  1. MYFORTIC [Suspect]
     Indication: RENAL TRANSPLANT
     Dosage: 3 DF (720 MG AM AND 360 MG PM), UNK
     Route: 048
     Dates: start: 2008
  2. MYFORTIC [Suspect]
     Dosage: UKN BID
     Route: 048
     Dates: start: 20120224
  3. LISINOPRIL [Concomitant]
     Dosage: 20 UKN, QD
     Route: 048
     Dates: start: 2012
  4. SIMVASTATIN [Concomitant]
     Dosage: 20 UKN, QHS
     Route: 048
     Dates: start: 2012
  5. ANTIHYPERTENSIVE DRUGS [Concomitant]
     Dosage: UNK UKN, UNK
  6. LIPID MODIFYING AGENTS [Concomitant]
     Dosage: UNK UKN, UNK

REACTIONS (8)
  - Cerebrovascular accident [Recovering/Resolving]
  - Monoplegia [Recovering/Resolving]
  - Sensory loss [Unknown]
  - Dizziness [Unknown]
  - Vision blurred [Unknown]
  - Visual acuity reduced [Unknown]
  - Gait disturbance [Unknown]
  - Fall [Unknown]
